FAERS Safety Report 20596552 (Version 3)
Quarter: 2022Q1

REPORT INFORMATION
  Report Type: Spontaneous
  Country: US (occurrence: US)
  Receive Date: 20220315
  Receipt Date: 20220321
  Transmission Date: 20220424
  Serious: No
  Sender: FDA-Public Use
  Company Number: US-BIOGEN-2022BI01104882

PATIENT
  Age: 52 Year
  Sex: Female

DRUGS (4)
  1. VUMERITY [Suspect]
     Active Substance: DIROXIMEL FUMARATE
     Indication: Multiple sclerosis
     Route: 048
     Dates: start: 20220305
  2. VUMERITY [Suspect]
     Active Substance: DIROXIMEL FUMARATE
     Route: 065
     Dates: start: 20220224
  3. VUMERITY [Suspect]
     Active Substance: DIROXIMEL FUMARATE
     Dosage: TOOK ONE 231 MG CAPSULE FOR MORNING DOSE ON 05-MAR-2022 AND TOOK TWO 231 MG CAPSULES FOR EVENING ...
     Route: 048
     Dates: start: 20220305
  4. VUMERITY [Suspect]
     Active Substance: DIROXIMEL FUMARATE
     Dosage: HAS BEEN ON 462 MG, BY MOUTH, TWICE DAILY SINCE THEN
     Route: 048
     Dates: start: 202203

REACTIONS (7)
  - Intentional overdose [Recovered/Resolved]
  - Fatigue [Not Recovered/Not Resolved]
  - Cotard^s syndrome [Unknown]
  - Tremor [Unknown]
  - Feeling abnormal [Unknown]
  - Flushing [Unknown]
  - Feeling of body temperature change [Recovered/Resolved]

NARRATIVE: CASE EVENT DATE: 20220301
